FAERS Safety Report 19463283 (Version 1)
Quarter: 2021Q2

REPORT INFORMATION
  Report Type: Report from Study
  Country: DE (occurrence: DE)
  Receive Date: 20210625
  Receipt Date: 20210625
  Transmission Date: 20210717
  Serious: Yes (Death, Other)
  Sender: FDA-Public Use
  Company Number: DE-PFIZER INC-2021752098

PATIENT

DRUGS (4)
  1. DAUNORUBICIN HCL [Suspect]
     Active Substance: DAUNORUBICIN HYDROCHLORIDE
     Indication: ACUTE MYELOID LEUKAEMIA
     Dosage: 100 MG/M2, DAY 3?8
  2. ETOPOSIDE. [Suspect]
     Active Substance: ETOPOSIDE
     Indication: ACUTE MYELOID LEUKAEMIA
     Dosage: 150 MG/M2/DAY (AS A 60?MINUTE INFUSION ON DAYS 6, 7, 8)
  3. DAUNORUBICIN HCL [Suspect]
     Active Substance: DAUNORUBICIN HYDROCHLORIDE
     Dosage: 60 MG/M2/DAY (DAY 3, 4, 5 )
  4. CYTARABINE. [Suspect]
     Active Substance: CYTARABINE
     Indication: ACUTE MYELOID LEUKAEMIA
     Dosage: 100 MG/M2/DAY (AS A CONTINUOUS INFUSION FOR 2 DAYS + 12 HOURS EVERY 30 MINUTES)

REACTIONS (2)
  - Cardiomyopathy [Fatal]
  - Cardiac failure [Fatal]
